FAERS Safety Report 7907093-5 (Version None)
Quarter: 2011Q4

REPORT INFORMATION
  Report Type: 
  Country: None (occurrence: None)
  Receive Date: 20111110
  Receipt Date: 20110708
  Transmission Date: 20120403
  Serious: Yes (Other)
  Sender: FDA-Public Use
  Company Number: US-ASTRAZENECA-2011SE41302

PATIENT
  Age: 17645 Day
  Sex: Male

DRUGS (21)
  1. TRIAMCINOLONE [Concomitant]
     Dosage: 1 APPLICATION THREE TIMES A DAY
     Route: 061
  2. KLONOPIN [Concomitant]
     Route: 048
  3. NITROGLYCERIN [Concomitant]
     Route: 060
  4. EFFIENT [Concomitant]
  5. TRAMADOL HCL [Concomitant]
     Indication: PAIN
     Route: 048
  6. TRAMADOL HCL [Concomitant]
     Dosage: PRN
     Route: 048
  7. NEXIUM [Concomitant]
     Route: 048
  8. CYMBALTA [Concomitant]
  9. LISINOPRIL [Suspect]
     Route: 048
  10. AMLODIPINE [Concomitant]
     Route: 048
  11. AMOXICILLIN [Concomitant]
     Route: 048
  12. TOPROL-XL [Concomitant]
     Route: 048
  13. BENTYL [Concomitant]
     Indication: ABDOMINAL PAIN UPPER
     Route: 048
  14. ISOSORBIDE MONONITRATE [Concomitant]
     Route: 048
  15. COZAAR [Concomitant]
     Indication: HYPERTENSION
     Route: 048
  16. TIZANIDINE HCL [Concomitant]
     Route: 048
  17. NITROGLYCERIN [Concomitant]
     Dosage: 0.4 MG EVERY 5 MINUTES, NOT EXCEED 3 DOSES/15 MINUTES
     Route: 060
  18. LIPITOR [Concomitant]
     Route: 048
  19. ASPIRIN [Concomitant]
     Route: 048
  20. TIZANIDINE HCL [Concomitant]
     Dosage: AS NEEDED NOT TO EXCEED 3 DOSES/DAY
     Route: 048
  21. BENTYL [Concomitant]
     Route: 048

REACTIONS (2)
  - ANGIOEDEMA [None]
  - DRUG HYPERSENSITIVITY [None]
